FAERS Safety Report 11138556 (Version 1)
Quarter: 2015Q2

REPORT INFORMATION
  Report Type: Spontaneous
  Country: US (occurrence: US)
  Receive Date: 20150527
  Receipt Date: 20150527
  Transmission Date: 20150821
  Serious: Yes (Other)
  Sender: FDA-Public Use
  Company Number: US-TEVA-534390USA

PATIENT
  Age: 74 Year
  Sex: Male
  Weight: 86.26 kg

DRUGS (6)
  1. SOTALOL. [Suspect]
     Active Substance: SOTALOL
     Indication: VENTRICULAR ARRHYTHMIA
     Dosage: 160 MILLIGRAM DAILY;
     Route: 048
  2. ELIQUIS [Suspect]
     Active Substance: APIXABAN
     Indication: CEREBROVASCULAR ACCIDENT PROPHYLAXIS
     Route: 065
  3. TAMSULOSIN [Suspect]
     Active Substance: TAMSULOSIN
     Indication: DYSURIA
     Dosage: .4 MILLIGRAM DAILY;
     Route: 048
     Dates: start: 2013, end: 20150112
  4. ELIQUIS [Suspect]
     Active Substance: APIXABAN
     Indication: ANTICOAGULANT THERAPY
  5. FINASTERIDE. [Suspect]
     Active Substance: FINASTERIDE
     Indication: DYSURIA
     Dosage: 5 MILLIGRAM DAILY;
     Route: 048
  6. SOTALOL. [Suspect]
     Active Substance: SOTALOL
     Indication: ATRIAL FIBRILLATION

REACTIONS (5)
  - Myalgia [Not Recovered/Not Resolved]
  - Arthralgia [Not Recovered/Not Resolved]
  - Musculoskeletal pain [Not Recovered/Not Resolved]
  - Atrial fibrillation [Recovering/Resolving]
  - Movement disorder [Not Recovered/Not Resolved]

NARRATIVE: CASE EVENT DATE: 2014
